FAERS Safety Report 9419759 (Version 1)
Quarter: 2013Q3

REPORT INFORMATION
  Report Type: Spontaneous
  Country: US (occurrence: None)
  Receive Date: 20130723
  Receipt Date: 20130723
  Transmission Date: 20140515
  Serious: Yes (Hospitalization)
  Sender: FDA-Public Use
  Company Number: 2013P1011924

PATIENT
  Age: 74 Year
  Sex: Male

DRUGS (3)
  1. INFUMORPH [Suspect]
     Indication: PAIN
     Route: 037
     Dates: end: 20130709
  2. CLONIDINE [Suspect]
     Indication: PAIN
     Route: 037
     Dates: end: 20130709
  3. COMPOUNDED BACLOFEN (INTRATHECAL) - 2000 MCG/ML [Suspect]
     Indication: PAIN
     Route: 037
     Dates: end: 20130709

REACTIONS (1)
  - Nausea [None]
